FAERS Safety Report 17871008 (Version 1)
Quarter: 2020Q2

REPORT INFORMATION
  Report Type: Spontaneous
  Country: US (occurrence: US)
  Receive Date: 20200605
  Receipt Date: 20200605
  Transmission Date: 20200714
  Serious: Yes (Hospitalization)
  Sender: FDA-Public Use
  Company Number: None

PATIENT
  Age: 77 Year
  Sex: Female

DRUGS (1)
  1. AGRYLIN [Suspect]
     Active Substance: ANAGRELIDE HYDROCHLORIDE
     Indication: BLOOD DISORDER
     Route: 048
     Dates: start: 20200306

REACTIONS (2)
  - Fatigue [None]
  - Fluid retention [None]

NARRATIVE: CASE EVENT DATE: 20200522
